FAERS Safety Report 4454719-7 (Version None)
Quarter: 2004Q3

REPORT INFORMATION
  Report Type: 
  Country: None (occurrence: None)
  Receive Date: 20040920
  Receipt Date: 20040920
  Transmission Date: 20050211
  Serious: Yes (Other)
  Sender: FDA-Public Use
  Company Number: None

PATIENT
  Age: 77 Year
  Sex: Male
  Weight: 72.5755 kg

DRUGS (4)
  1. TEQUIN [Suspect]
     Indication: UPPER RESPIRATORY TRACT INFECTION
     Dosage: 400MG DAILY ORAL
     Route: 048
     Dates: start: 20040901, end: 20040910
  2. AVAPRO [Suspect]
     Indication: DIABETES MELLITUS
     Dosage: 300 MG DAILY ORAL
     Route: 048
     Dates: start: 20040301, end: 20040917
  3. AVAPRO [Suspect]
     Indication: HYPERTENSION
     Dosage: 300 MG DAILY ORAL
     Route: 048
     Dates: start: 20040301, end: 20040917
  4. LOVASTATIN [Concomitant]

REACTIONS (4)
  - ANGIONEUROTIC OEDEMA [None]
  - SWOLLEN TONGUE [None]
  - TONGUE DISCOLOURATION [None]
  - TONGUE DRY [None]
